FAERS Safety Report 7439464-8 (Version None)
Quarter: 2011Q2

REPORT INFORMATION
  Report Type: 
  Country: None (occurrence: None)
  Receive Date: 20110427
  Receipt Date: 20110413
  Transmission Date: 20111010
  Serious: Yes (Other)
  Sender: FDA-Public Use
  Company Number: GB-JNJFOC-20101209155

PATIENT
  Age: 49 Year
  Sex: Male

DRUGS (1)
  1. REMICADE [Suspect]
     Indication: PSORIASIS

REACTIONS (6)
  - DYSPNOEA [None]
  - INFUSION RELATED REACTION [None]
  - FLUSHING [None]
  - PYREXIA [None]
  - URTICARIA [None]
  - TACHYCARDIA [None]
